FAERS Safety Report 10086637 (Version 1)
Quarter: 2014Q2

REPORT INFORMATION
  Report Type: Spontaneous
  Country: US (occurrence: US)
  Receive Date: 20140418
  Receipt Date: 20140418
  Transmission Date: 20141212
  Serious: Yes (Death)
  Sender: FDA-Public Use
  Company Number: US-PFIZER INC-2014108860

PATIENT
  Age: 59 Year
  Sex: Female

DRUGS (1)
  1. INLYTA [Suspect]
     Dosage: 5 MG, UNK
     Dates: start: 20140108

REACTIONS (1)
  - Death [Fatal]
